FAERS Safety Report 16235985 (Version 1)
Quarter: 2019Q2

REPORT INFORMATION
  Report Type: Spontaneous
  Country: BR (occurrence: BR)
  Receive Date: 20190425
  Receipt Date: 20190425
  Transmission Date: 20190711
  Serious: Yes (Other)
  Sender: FDA-Public Use
  Company Number: BR-009507513-1904BRA010576

PATIENT
  Sex: Male
  Weight: 71 kg

DRUGS (6)
  1. ROACUTAN [Suspect]
     Active Substance: ISOTRETINOIN
     Indication: ACNE
     Dosage: UNK
     Route: 048
     Dates: start: 20090801
  2. ROACUTAN [Suspect]
     Active Substance: ISOTRETINOIN
     Indication: SEBORRHOEA
     Dosage: GRADUALLY INCREASEDUNK
     Route: 048
  3. ROACUTAN [Suspect]
     Active Substance: ISOTRETINOIN
     Dosage: DOSAGE INCREASED
     Route: 048
     Dates: start: 200907, end: 20091226
  4. ROACUTAN [Suspect]
     Active Substance: ISOTRETINOIN
     Dosage: STRENGTH: 10 AND 20 MG/ CAPSULE
     Route: 048
     Dates: start: 200912
  5. FINASTERIDE. [Suspect]
     Active Substance: FINASTERIDE
     Indication: PRODUCT USED FOR UNKNOWN INDICATION
     Route: 065
  6. ROACUTAN [Suspect]
     Active Substance: ISOTRETINOIN
     Dosage: 20 MILLIGRAM, QD
     Route: 048
     Dates: start: 101003, end: 201008

REACTIONS (25)
  - Gastritis [Unknown]
  - Impaired healing [Not Recovered/Not Resolved]
  - Chapped lips [Unknown]
  - Muscle atrophy [Unknown]
  - Depressed mood [Unknown]
  - Negative thoughts [Unknown]
  - Muscular weakness [Unknown]
  - Photosensitivity reaction [Not Recovered/Not Resolved]
  - Skin disorder [Unknown]
  - Muscle disorder [Unknown]
  - Aspartate aminotransferase increased [Unknown]
  - Anxiety [Recovered/Resolved]
  - Mental disorder [Unknown]
  - Depression [Not Recovered/Not Resolved]
  - Myalgia [Unknown]
  - Thyroid disorder [Unknown]
  - Pallor [Unknown]
  - Muscle spasms [Unknown]
  - Hyperhidrosis [Not Recovered/Not Resolved]
  - Skin hypopigmentation [Not Recovered/Not Resolved]
  - Arthralgia [Unknown]
  - Suicidal ideation [Not Recovered/Not Resolved]
  - Anxiety [Not Recovered/Not Resolved]
  - Dry skin [Unknown]
  - Hyperhidrosis [Recovered/Resolved]

NARRATIVE: CASE EVENT DATE: 2009
